FAERS Safety Report 11046932 (Version 1)
Quarter: 2015Q2

REPORT INFORMATION
  Report Type: Spontaneous
  Country: DK (occurrence: DK)
  Receive Date: 20150420
  Receipt Date: 20150420
  Transmission Date: 20150821
  Serious: Yes (Life-Threatening, Other)
  Sender: FDA-Public Use
  Company Number: DK-SUN PHARMACEUTICAL INDUSTRIES LTD-2015R1-95396

PATIENT
  Age: 20 Month
  Sex: Female

DRUGS (5)
  1. METHOTREXATE [Suspect]
     Active Substance: METHOTREXATE
     Indication: ACUTE LYMPHOCYTIC LEUKAEMIA
     Dosage: 10MG ON DAYS 1, 8, 15, AND 29
     Route: 037
  2. VINCRISTINE [Suspect]
     Active Substance: VINCRISTINE
     Indication: ACUTE LYMPHOCYTIC LEUKAEMIA
     Dosage: 2.0 MG/M2, 1/WEEK (6 TIMES)
     Route: 065
  3. PREDNISOLONE. [Suspect]
     Active Substance: PREDNISOLONE
     Indication: ACUTE LYMPHOCYTIC LEUKAEMIA
     Dosage: 60 MG/M2, DAILY
     Route: 065
  4. ESCHERICHIA COLI ASPARAGINASE [Suspect]
     Active Substance: ASPARAGINASE
     Indication: ACUTE LYMPHOCYTIC LEUKAEMIA
     Dosage: 6500 IU/M2/2/WEEK (4 DOSES FROM DAY 36)
     Route: 065
  5. DOXORUBICIN [Suspect]
     Active Substance: DOXORUBICIN
     Indication: ACUTE LYMPHOCYTIC LEUKAEMIA
     Dosage: 40 MG/M2 ON DAYS 1, 22, AND 36
     Route: 065

REACTIONS (9)
  - Ataxia telangiectasia [Unknown]
  - Fatigue [Unknown]
  - Adenovirus infection [Unknown]
  - Immunosuppression [Unknown]
  - Febrile neutropenia [Unknown]
  - Haematuria [Unknown]
  - Constipation [Unknown]
  - Stomatitis [Unknown]
  - Cystitis [Unknown]
